FAERS Safety Report 20466817 (Version 2)
Quarter: 2022Q3

REPORT INFORMATION
  Report Type: Spontaneous
  Country: US (occurrence: US)
  Receive Date: 20220214
  Receipt Date: 20220801
  Transmission Date: 20221027
  Serious: Yes (Other)
  Sender: FDA-Public Use
  Company Number: US-GILEAD-2022-0569457

PATIENT
  Age: 48 Year
  Sex: Male
  Weight: 74.83 kg

DRUGS (24)
  1. ATRIPLA [Suspect]
     Active Substance: EFAVIRENZ\EMTRICITABINE\TENOFOVIR DISOPROXIL FUMARATE
     Indication: HIV infection
     Dosage: UNK
     Route: 048
     Dates: start: 2005
  2. ATRIPLA [Suspect]
     Active Substance: EFAVIRENZ\EMTRICITABINE\TENOFOVIR DISOPROXIL FUMARATE
     Dosage: UNK
     Route: 065
     Dates: start: 200710, end: 201605
  3. TRUVADA [Suspect]
     Active Substance: EMTRICITABINE\TENOFOVIR DISOPROXIL FUMARATE
     Indication: HIV infection
     Dosage: UNK
     Route: 048
     Dates: start: 200512, end: 200710
  4. ODEFSEY [Concomitant]
     Active Substance: EMTRICITABINE\RILPIVIRINE HYDROCHLORIDE\TENOFOVIR ALAFENAMIDE FUMARATE
  5. NORVIR [Concomitant]
     Active Substance: RITONAVIR
  6. REYATAZ [Concomitant]
     Active Substance: ATAZANAVIR SULFATE
  7. ACYCLOVIR [Concomitant]
     Active Substance: ACYCLOVIR
  8. VITAMIN D3 [Concomitant]
     Active Substance: CHOLECALCIFEROL
  9. CIALIS [Concomitant]
     Active Substance: TADALAFIL
  10. FAMCICLOVIR [Concomitant]
     Active Substance: FAMCICLOVIR
  11. FLUOCINOLONE ACETONIDE [Concomitant]
     Active Substance: FLUOCINOLONE ACETONIDE
  12. LORAZEPAM [Concomitant]
     Active Substance: LORAZEPAM
  13. MUPIROCIN [Concomitant]
     Active Substance: MUPIROCIN
  14. OFLOXACIN [Concomitant]
     Active Substance: OFLOXACIN
  15. SILDENAFIL [Concomitant]
     Active Substance: SILDENAFIL
  16. TRIAMCINOLONE [Concomitant]
     Active Substance: TRIAMCINOLONE
  17. ZOLPIDEM [Concomitant]
     Active Substance: ZOLPIDEM TARTRATE
  18. LATANOPROST [Concomitant]
     Active Substance: LATANOPROST
  19. VITAMIN B6 [Concomitant]
     Active Substance: PYRIDOXINE HYDROCHLORIDE
  20. CYANOCOBALAMIN [Concomitant]
     Active Substance: CYANOCOBALAMIN
  21. ZINC [Concomitant]
     Active Substance: ZINC
  22. HERBALS\SAW PALMETTO [Concomitant]
     Active Substance: HERBALS\SAW PALMETTO
  23. ARCTIC COD LIVER OIL [Concomitant]
  24. GLUCOSAMINE [Concomitant]
     Active Substance: GLUCOSAMINE

REACTIONS (10)
  - Chronic kidney disease [Unknown]
  - Chronic kidney disease [Not Recovered/Not Resolved]
  - Nephrolithiasis [Not Recovered/Not Resolved]
  - Renal impairment [Unknown]
  - Pain [Not Recovered/Not Resolved]
  - Anxiety [Not Recovered/Not Resolved]
  - Anhedonia [Not Recovered/Not Resolved]
  - Emotional distress [Not Recovered/Not Resolved]
  - Nocturia [Not Recovered/Not Resolved]
  - Renal cyst [Not Recovered/Not Resolved]

NARRATIVE: CASE EVENT DATE: 20130101
